FAERS Safety Report 6862201-2 (Version None)
Quarter: 2010Q3

REPORT INFORMATION
  Report Type: 
  Country: None (occurrence: None)
  Receive Date: 20100721
  Receipt Date: 20100707
  Transmission Date: 20110219
  Serious: Yes (Hospitalization)
  Sender: FDA-Public Use
  Company Number: US-ELI_LILLY_AND_COMPANY-US201007002888

PATIENT
  Sex: Female

DRUGS (5)
  1. FORTEO [Suspect]
     Dosage: 20 UG, DAILY (1/D)
  2. AMBIEN [Concomitant]
  3. ATIVAN [Concomitant]
     Indication: NERVOUSNESS
  4. POTASSIUM CHLORIDE [Concomitant]
     Dosage: 20 MG, UNK
  5. NORVASC [Concomitant]

REACTIONS (17)
  - ARTHRALGIA [None]
  - BACK PAIN [None]
  - BURNING SENSATION [None]
  - CONSTIPATION [None]
  - DYSPEPSIA [None]
  - FATIGUE [None]
  - GASTRIC INFECTION [None]
  - HEADACHE [None]
  - HEART RATE INCREASED [None]
  - INSOMNIA [None]
  - MALAISE [None]
  - NASAL CONGESTION [None]
  - NASOPHARYNGITIS [None]
  - NERVOUSNESS [None]
  - OESOPHAGEAL INFECTION [None]
  - PRODUCTIVE COUGH [None]
  - THYROID DISORDER [None]
